FAERS Safety Report 10161927 (Version 2)
Quarter: 2014Q2

REPORT INFORMATION
  Report Type: Spontaneous
  Country: CN (occurrence: CN)
  Receive Date: 20140509
  Receipt Date: 20140527
  Transmission Date: 20141212
  Serious: Yes (Other)
  Sender: FDA-Public Use
  Company Number: CN-JNJFOC-20140419997

PATIENT
  Sex: 0

DRUGS (1)
  1. RISPERIDONE [Suspect]
     Indication: SCHIZOPHRENIA
     Route: 048

REACTIONS (6)
  - Liver function test abnormal [Unknown]
  - Electrocardiogram change [Unknown]
  - Constipation [Unknown]
  - Myotonia [Unknown]
  - Vision blurred [Unknown]
  - Somnolence [Unknown]
